FAERS Safety Report 6823031-0 (Version None)
Quarter: 2010Q3

REPORT INFORMATION
  Report Type: 
  Country: None (occurrence: None)
  Receive Date: 20100708
  Receipt Date: 20100629
  Transmission Date: 20110219
  Serious: Yes (Other)
  Sender: FDA-Public Use
  Company Number: B0602543A

PATIENT
  Sex: Male

DRUGS (1)
  1. CEFUROXIME [Suspect]
     Indication: INFECTION PROPHYLAXIS
     Route: 048
     Dates: start: 20091015

REACTIONS (3)
  - CLUSTER HEADACHE [None]
  - LACRIMATION INCREASED [None]
  - PRURITUS [None]
